FAERS Safety Report 22388896 (Version 22)
Quarter: 2025Q3

REPORT INFORMATION
  Report Type: Report from Study
  Country: US (occurrence: US)
  Receive Date: 20230531
  Receipt Date: 20250923
  Transmission Date: 20251021
  Serious: Yes (Other)
  Sender: TAKEDA
  Company Number: US-TAKEDA-2022TUS041288

PATIENT
  Age: 24 Year
  Sex: Female
  Weight: 57 kg

DRUGS (29)
  1. HUMAN IMMUNOGLOBULIN G [Suspect]
     Active Substance: HUMAN IMMUNOGLOBULIN G
     Indication: Immunodeficiency
     Dosage: 60 GRAM, Q4WEEKS
  2. HUMAN IMMUNOGLOBULIN G [Suspect]
     Active Substance: HUMAN IMMUNOGLOBULIN G
     Indication: Autonomic nervous system imbalance
     Dosage: 100 GRAM, Q4WEEKS
  3. HUMAN IMMUNOGLOBULIN G [Suspect]
     Active Substance: HUMAN IMMUNOGLOBULIN G
     Dosage: 60 GRAM, Q2WEEKS
  4. HUMAN IMMUNOGLOBULIN G [Suspect]
     Active Substance: HUMAN IMMUNOGLOBULIN G
     Dosage: 60 GRAM, Q4WEEKS
  5. MIDODRINE [Suspect]
     Active Substance: MIDODRINE
     Indication: Product used for unknown indication
     Dosage: UNK UNK, QID
  6. MIDODRINE [Suspect]
     Active Substance: MIDODRINE
     Dosage: UNK UNK, TID
  7. ACETAMINOPHEN [Concomitant]
     Active Substance: ACETAMINOPHEN
  8. EPINEPHRINE [Concomitant]
     Active Substance: EPINEPHRINE
  9. HEPARIN [Concomitant]
     Active Substance: HEPARIN SODIUM
  10. SODIUM CHLORIDE [Concomitant]
     Active Substance: SODIUM CHLORIDE
  11. CYANOCOBALAMIN [Concomitant]
     Active Substance: CYANOCOBALAMIN
  12. VITAMIN D3 [Concomitant]
     Active Substance: CHOLECALCIFEROL
  13. LIDOCAINE [Concomitant]
     Active Substance: LIDOCAINE
  14. MESTINON [Concomitant]
     Active Substance: PYRIDOSTIGMINE BROMIDE
  15. GLYCOPYRROLATE [Concomitant]
     Active Substance: GLYCOPYRROLATE
  16. DIPHENHYDRAMINE HYDROCHLORIDE [Concomitant]
     Active Substance: DIPHENHYDRAMINE HYDROCHLORIDE
  17. METHYLPREDNISOLONE [Concomitant]
     Active Substance: METHYLPREDNISOLONE
  18. CORLANOR [Concomitant]
     Active Substance: IVABRADINE HYDROCHLORIDE
  19. HYDROXYZINE HYDROCHLORIDE [Concomitant]
     Active Substance: HYDROXYZINE HYDROCHLORIDE
  20. GABAPENTIN [Concomitant]
     Active Substance: GABAPENTIN
  21. SODIUM CHLORIDE [Concomitant]
     Active Substance: SODIUM CHLORIDE
  22. SERTRALINE HYDROCHLORIDE [Concomitant]
     Active Substance: SERTRALINE HYDROCHLORIDE
  23. AMANTADINE [Concomitant]
     Active Substance: AMANTADINE
  24. CLONIDINE HYDROCHLORIDE [Concomitant]
     Active Substance: CLONIDINE HYDROCHLORIDE
  25. Lmx [Concomitant]
  26. BETAXOLOL HYDROCHLORIDE [Concomitant]
     Active Substance: BETAXOLOL HYDROCHLORIDE
  27. HYDROCORTISONE [Concomitant]
     Active Substance: HYDROCORTISONE
  28. SOLU-MEDROL [Concomitant]
     Active Substance: METHYLPREDNISOLONE SODIUM SUCCINATE
  29. DIPHENHYDRAMINE [Concomitant]
     Active Substance: DIPHENHYDRAMINE

REACTIONS (36)
  - Subchorionic haematoma [Unknown]
  - Subchorionic haemorrhage [Unknown]
  - Thrombosis [Unknown]
  - Nasopharyngitis [Recovered/Resolved]
  - Pregnancy [Recovered/Resolved]
  - Infectious mononucleosis [Unknown]
  - Viral infection [Unknown]
  - Heart rate decreased [Unknown]
  - Respiratory tract infection [Unknown]
  - COVID-19 [Unknown]
  - Insurance issue [Unknown]
  - Device infusion issue [Unknown]
  - Inappropriate schedule of product administration [Unknown]
  - Product use issue [Unknown]
  - Product use in unapproved indication [Unknown]
  - Extrasystoles [Unknown]
  - Fibrin D dimer increased [Unknown]
  - Device issue [Unknown]
  - Breast feeding [Unknown]
  - Breast pain [Unknown]
  - Arthropod bite [Recovering/Resolving]
  - Dermatitis allergic [Unknown]
  - Photophobia [Unknown]
  - Abdominal tenderness [Unknown]
  - Pain [Unknown]
  - Infusion site erythema [Unknown]
  - Infusion site extravasation [Unknown]
  - Infusion site pruritus [Unknown]
  - Dyspnoea [Unknown]
  - Headache [Recovered/Resolved]
  - Fatigue [Unknown]
  - Dizziness [Unknown]
  - Hypertension [Unknown]
  - Myalgia [Unknown]
  - Pain in extremity [Recovered/Resolved]
  - Lactation insufficiency [Recovered/Resolved]

NARRATIVE: CASE EVENT DATE: 20220629
